FAERS Safety Report 11009627 (Version 1)
Quarter: 2015Q2

REPORT INFORMATION
  Report Type: Spontaneous
  Country: US (occurrence: None)
  Receive Date: 20150409
  Receipt Date: 20150409
  Transmission Date: 20150821
  Serious: Yes (Other)
  Sender: FDA-Public Use
  Company Number: None

PATIENT
  Age: 81 Year
  Sex: Female

DRUGS (1)
  1. EXJADE [Suspect]
     Active Substance: DEFERASIROX
     Indication: IRON OVERLOAD
     Dosage: 750 MG, QD, P.O
     Route: 048
     Dates: start: 20140121, end: 20150112

REACTIONS (2)
  - Treatment failure [None]
  - Therapy cessation [None]

NARRATIVE: CASE EVENT DATE: 20150112
